FAERS Safety Report 4558615-6 (Version None)
Quarter: 2005Q1

REPORT INFORMATION
  Report Type: 
  Country: None (occurrence: None)
  Receive Date: 20050119
  Receipt Date: 20050107
  Transmission Date: 20050727
  Serious: Yes (Hospitalization)
  Sender: FDA-Public Use
  Company Number: 001-0981-992663

PATIENT
  Age: 50 Year
  Sex: Female
  Weight: 68.0396 kg

DRUGS (4)
  1. ATORVASTATIN (ATORVASTATIN) [Suspect]
     Indication: HYPERLIPIDAEMIA
     Dosage: 10 MG (DAILY), ORAL
     Route: 048
     Dates: start: 19990315, end: 19990421
  2. ASPIRIN [Concomitant]
  3. ATENOLOL [Concomitant]
  4. ALPRAZOLAM [Concomitant]

REACTIONS (8)
  - ABSCESS [None]
  - COLON CANCER STAGE IV [None]
  - DIVERTICULITIS [None]
  - FAT NECROSIS [None]
  - FIBROSIS [None]
  - INFLAMMATION [None]
  - LARGE INTESTINE PERFORATION [None]
  - METASTASES TO LYMPH NODES [None]
